FAERS Safety Report 5622291-1 (Version None)
Quarter: 2008Q1

REPORT INFORMATION
  Report Type: 
  Country: None (occurrence: None)
  Receive Date: 20080211
  Receipt Date: 20080128
  Transmission Date: 20080703
  Serious: Yes (Other)
  Sender: FDA-Public Use
  Company Number: BR-ASTRAZENECA-2008UW02654

PATIENT
  Age: 81 Year
  Sex: Female

DRUGS (7)
  1. SELOZOK [Suspect]
     Indication: DRUG THERAPY
     Route: 048
  2. MODURETIC 5-50 [Concomitant]
     Indication: DIURETIC THERAPY
     Route: 048
  3. DAFLON [Concomitant]
     Indication: ANGIOPATHY
     Route: 048
  4. ISOFLAVONA [Concomitant]
     Indication: HORMONE REPLACEMENT THERAPY
     Route: 048
  5. LORAX [Concomitant]
     Indication: ANXIETY
     Route: 048
  6. SOMALGIN [Concomitant]
     Indication: ANTICOAGULANT THERAPY
     Route: 048
     Dates: end: 20071101
  7. TANDRILAX [Concomitant]
     Indication: DEMENTIA ALZHEIMER'S TYPE
     Route: 048
     Dates: start: 20070101

REACTIONS (9)
  - BLOOD CHOLESTEROL INCREASED [None]
  - BRONCHIAL DISORDER [None]
  - DYSPEPSIA [None]
  - DYSPNOEA [None]
  - FALL [None]
  - LUNG NEOPLASM [None]
  - MEMORY IMPAIRMENT [None]
  - OSTEOPOROSIS [None]
  - RIB FRACTURE [None]
